FAERS Safety Report 5511993-3 (Version None)
Quarter: 2007Q4

REPORT INFORMATION
  Report Type: 
  Country: None (occurrence: None)
  Receive Date: 20071109
  Receipt Date: 20071105
  Transmission Date: 20080405
  Serious: Yes (Disabling)
  Sender: FDA-Public Use
  Company Number: GB-MERCK-0711GBR00045

PATIENT
  Age: 60 Year
  Sex: Male

DRUGS (9)
  1. SINGULAIR [Suspect]
     Indication: ASTHMA
     Route: 048
     Dates: start: 20070713, end: 20070817
  2. AMLODIPINE BESYLATE [Concomitant]
     Route: 065
  3. BENDROFLUMETHIAZIDE [Concomitant]
     Route: 065
  4. ENALAPRIL MALEATE [Concomitant]
     Route: 065
  5. ESOMEPRAZOLE [Concomitant]
     Route: 048
  6. ALBUTEROL [Concomitant]
  7. FLUTICASONE PROPIONATE AND SALMETEROL XINAFOATE [Concomitant]
  8. SIMVASTATIN [Concomitant]
     Route: 048
  9. ZAFIRLUKAST [Concomitant]
     Route: 065

REACTIONS (2)
  - DEPRESSED MOOD [None]
  - TETANY [None]
